FAERS Safety Report 15963662 (Version 1)
Quarter: 2019Q1

REPORT INFORMATION
  Report Type: Spontaneous
  Country: US (occurrence: US)
  Receive Date: 20190214
  Receipt Date: 20190214
  Transmission Date: 20190417
  Serious: No
  Sender: FDA-Public Use
  Company Number: US-COLLEGIUM PHARMACEUTICAL, INC.-2018CGM00366

PATIENT
  Age: 52 Year
  Sex: Female
  Weight: 56.69 kg

DRUGS (3)
  1. METAXALONE. [Concomitant]
     Active Substance: METAXALONE
     Dosage: 800 MG, 3X/DAY
  2. DIAZEPAM. [Concomitant]
     Active Substance: DIAZEPAM
     Dosage: 5 MG, 3X/DAY (EVERY 8 HOURS)
  3. XTAMPZA ER [Suspect]
     Active Substance: OXYCODONE
     Indication: PAIN
     Dosage: 36 MG, 2X/DAY
     Route: 048
     Dates: start: 20181205

REACTIONS (5)
  - Product substitution issue [Not Recovered/Not Resolved]
  - Drug ineffective [Not Recovered/Not Resolved]
  - Nausea [Not Recovered/Not Resolved]
  - Insomnia [Not Recovered/Not Resolved]
  - Pain [Not Recovered/Not Resolved]

NARRATIVE: CASE EVENT DATE: 20181205
